FAERS Safety Report 8408366-2 (Version None)
Quarter: 2012Q2

REPORT INFORMATION
  Report Type: 
  Country: None (occurrence: None)
  Receive Date: 20120531
  Receipt Date: 20120531
  Transmission Date: 20120825
  Serious: No
  Sender: FDA-Public Use
  Company Number: None

PATIENT
  Age: 74 Year
  Sex: Female
  Weight: 81.1939 kg

DRUGS (1)
  1. VOLTAREN [Suspect]
     Indication: ARTHRITIS
     Dosage: 4 GRAMS TO KNEES 4 TIMES DAY
     Dates: start: 20110224, end: 20120201

REACTIONS (2)
  - BLOOD BLISTER [None]
  - PRODUCT CONTAMINATION [None]
